FAERS Safety Report 7307186-X (Version None)
Quarter: 2011Q1

REPORT INFORMATION
  Report Type: 
  Country: None (occurrence: None)
  Receive Date: 20110120
  Receipt Date: 20100922
  Transmission Date: 20110831
  Serious: Yes (Other)
  Sender: FDA-Public Use
  Company Number: 2010SP050948

PATIENT
  Sex: Female

DRUGS (1)
  1. DULERA TABLET [Suspect]
     Indication: ASTHMA
     Dosage: BID; PO
     Route: 048
     Dates: start: 20100909

REACTIONS (3)
  - NERVOUSNESS [None]
  - TACHYCARDIA [None]
  - MALAISE [None]
